FAERS Safety Report 9687508 (Version 2)
Quarter: 2013Q4

REPORT INFORMATION
  Report Type: Report from Study
  Country: JP (occurrence: JP)
  Receive Date: 20131114
  Receipt Date: 20131211
  Transmission Date: 20140711
  Serious: Yes (Hospitalization)
  Sender: FDA-Public Use
  Company Number: JP-ROCHE-1299596

PATIENT
  Age: 77 Year
  Sex: Male
  Weight: 56 kg

DRUGS (20)
  1. METHOXY POLYETHYLENE GLYCOL-EPOETIN BETA [Suspect]
     Indication: NEPHROGENIC ANAEMIA
     Route: 058
     Dates: start: 20120730
  2. ALLOZYM [Concomitant]
     Indication: GLOMERULONEPHRITIS CHRONIC
     Route: 048
     Dates: end: 20121107
  3. BLOPRESS [Concomitant]
     Route: 048
  4. CLARITIN [Concomitant]
     Indication: GLOMERULONEPHRITIS CHRONIC
     Route: 048
  5. OMEPRAL [Concomitant]
     Indication: PROPHYLAXIS
     Route: 048
  6. PURSENNID [Concomitant]
     Route: 048
  7. CONIEL [Concomitant]
     Route: 048
  8. MUCOSTA [Concomitant]
     Indication: PROPHYLAXIS
     Route: 048
  9. ATINES [Concomitant]
     Route: 048
  10. GABALON [Concomitant]
     Route: 048
     Dates: start: 20120820
  11. CALONAL [Concomitant]
     Indication: PROPHYLAXIS
     Dosage: SINGLE USE
     Route: 048
     Dates: start: 20121025
  12. RINDERON-V [Concomitant]
     Indication: PROPHYLAXIS
     Dosage: PROPER QUANTITY
     Route: 061
     Dates: start: 20121026
  13. ADALAT CR [Concomitant]
     Route: 048
     Dates: start: 20121108, end: 20121203
  14. ADALAT CR [Concomitant]
     Route: 048
     Dates: start: 20121204, end: 20130203
  15. ADALAT CR [Concomitant]
     Route: 048
     Dates: start: 20130205
  16. FEBURIC [Concomitant]
     Indication: GLOMERULONEPHRITIS CHRONIC
     Route: 048
     Dates: start: 20121108
  17. ALFAROL [Concomitant]
     Indication: GLOMERULONEPHRITIS CHRONIC
     Route: 048
     Dates: start: 20130108
  18. LASIX [Concomitant]
     Indication: GLOMERULONEPHRITIS CHRONIC
     Route: 048
     Dates: start: 20130128
  19. ARGAMATE [Concomitant]
     Indication: GLOMERULONEPHRITIS CHRONIC
     Route: 048
     Dates: start: 20130205
  20. SELTOUCH [Concomitant]
     Dosage: SINGLE USE
     Route: 061
     Dates: start: 20120903

REACTIONS (4)
  - Cellulitis [Recovered/Resolved]
  - Hypertensive crisis [Recovered/Resolved]
  - Disuse syndrome [Recovering/Resolving]
  - Fall [Unknown]
